FAERS Safety Report 5083852-4 (Version None)
Quarter: 2006Q3

REPORT INFORMATION
  Report Type: 
  Country: None (occurrence: None)
  Receive Date: 20060818
  Receipt Date: 20060731
  Transmission Date: 20061208
  Serious: Yes (Other)
  Sender: FDA-Public Use
  Company Number: JP-MERCK-0608USA02353

PATIENT
  Age: 24 Year
  Sex: Female

DRUGS (3)
  1. SINGULAIR [Suspect]
     Route: 048
     Dates: start: 20060721, end: 20060721
  2. THEOLONG [Concomitant]
     Indication: ASTHMA
     Route: 048
     Dates: start: 20060409
  3. QVAR 40 [Concomitant]
     Indication: ASTHMA
     Route: 055
     Dates: start: 20060409

REACTIONS (1)
  - PAIN IN EXTREMITY [None]
